FAERS Safety Report 15191059 (Version 1)
Quarter: 2018Q3

REPORT INFORMATION
  Report Type: Spontaneous
  Country: GB (occurrence: GB)
  Receive Date: 20180724
  Receipt Date: 20180724
  Transmission Date: 20181010
  Serious: Yes (Death)
  Sender: FDA-Public Use
  Company Number: GB-MYLANLABS-2018M1053720

PATIENT
  Age: 31 Year
  Sex: Male

DRUGS (4)
  1. TOPOTECAN [Suspect]
     Active Substance: TOPOTECAN HYDROCHLORIDE
     Indication: BURKITT^S LYMPHOMA
     Dosage: 1MGM?2 DAY?1
     Route: 042
  2. VINORELBINE [Suspect]
     Active Substance: VINORELBINE\VINORELBINE TARTRATE
     Indication: BURKITT^S LYMPHOMA
     Dosage: 20 MGM?2
     Route: 042
  3. GEMCITABINE [Suspect]
     Active Substance: GEMCITABINE\GEMCITABINE HYDROCHLORIDE
     Indication: BURKITT^S LYMPHOMA
     Dosage: 3600MGM?2 OVER 6 H
     Route: 042
  4. THIOTEPA. [Suspect]
     Active Substance: THIOTEPA
     Indication: BURKITT^S LYMPHOMA
     Dosage: 15 MGM?2 OVER 4 H
     Route: 042

REACTIONS (1)
  - Burkitt^s lymphoma refractory [Fatal]
